FAERS Safety Report 7002426-9 (Version None)
Quarter: 2010Q3

REPORT INFORMATION
  Report Type: 
  Country: None (occurrence: None)
  Receive Date: 20100920
  Receipt Date: 20100914
  Transmission Date: 20110219
  Serious: Yes (Other)
  Sender: FDA-Public Use
  Company Number: PH-WYE-H17502810

PATIENT
  Age: 43 Year
  Sex: Female

DRUGS (1)
  1. RAPAMUNE [Suspect]
     Dosage: DOSE AND FREQUENCY NOT SPECIFIED
     Route: 065

REACTIONS (1)
  - COLITIS ISCHAEMIC [None]
